FAERS Safety Report 12653772 (Version 1)
Quarter: 2016Q3

REPORT INFORMATION
  Report Type: Spontaneous
  Country: US (occurrence: US)
  Receive Date: 20160816
  Receipt Date: 20160816
  Transmission Date: 20161109
  Serious: Yes (Life-Threatening, Disabling)
  Sender: FDA-Public Use
  Company Number: US-ALVOGEN-2016-ALVOGEN-027219

PATIENT
  Age: 79 Year
  Sex: Female

DRUGS (4)
  1. ATENOLOL. [Suspect]
     Active Substance: ATENOLOL
     Indication: HYPERTENSION
     Dates: start: 1990
  2. MK-3475 [Suspect]
     Active Substance: PEMBROLIZUMAB
     Indication: TRANSITIONAL CELL CARCINOMA
     Route: 048
     Dates: start: 20160122, end: 20160706
  3. PROCARDIA [Concomitant]
     Active Substance: NIFEDIPINE
     Indication: PRODUCT USED FOR UNKNOWN INDICATION
     Route: 065
     Dates: start: 1990
  4. INCB24360 [Suspect]
     Active Substance: EPACADOSTAT
     Indication: TRANSITIONAL CELL CARCINOMA
     Route: 048
     Dates: start: 20160122

REACTIONS (4)
  - Hypoxia [Recovering/Resolving]
  - White blood cell count increased [Not Recovered/Not Resolved]
  - Hypotension [Recovered/Resolved]
  - Dehydration [Unknown]

NARRATIVE: CASE EVENT DATE: 20160706
